FAERS Safety Report 13512711 (Version 1)
Quarter: 2017Q2

REPORT INFORMATION
  Report Type: Spontaneous
  Country: RU (occurrence: RU)
  Receive Date: 20170504
  Receipt Date: 20170504
  Transmission Date: 20170830
  Serious: Yes (Hospitalization)
  Sender: FDA-Public Use
  Company Number: RU-ASTRAZENECA-2017SE43764

PATIENT
  Age: 78 Year
  Sex: Female

DRUGS (3)
  1. SYMBICORT [Suspect]
     Active Substance: BUDESONIDE\FORMOTEROL FUMARATE DIHYDRATE
     Indication: BRONCHITIS
     Dosage: 80/4.5 MCG, 60 DOSE, BID
     Route: 055
     Dates: start: 2016
  2. CONCOR [Concomitant]
     Active Substance: BISOPROLOL FUMARATE
  3. ASPIRIN. [Concomitant]
     Active Substance: ASPIRIN

REACTIONS (7)
  - Product use in unapproved indication [Unknown]
  - Heart rate irregular [Unknown]
  - Tachycardia [Unknown]
  - Off label use [Unknown]
  - Speech disorder [Recovered/Resolved with Sequelae]
  - Memory impairment [Unknown]
  - Arrhythmia [Unknown]

NARRATIVE: CASE EVENT DATE: 201702
